FAERS Safety Report 8230586-0 (Version None)
Quarter: 2012Q1

REPORT INFORMATION
  Report Type: 
  Country: None (occurrence: None)
  Receive Date: 20120320
  Receipt Date: 20120306
  Transmission Date: 20120608
  Serious: Yes (Other)
  Sender: FDA-Public Use
  Company Number: DSJ-2011-19358

PATIENT
  Sex: Male

DRUGS (6)
  1. CILOSTAZOL [Suspect]
     Indication: PAIN IN EXTREMITY
     Dosage: 200; 100 MG, PER ORAL
     Route: 048
     Dates: start: 20070101
  2. BENICAR HCT [Suspect]
     Indication: HYPERTENSION
     Dosage: 40/25; 20/12.5 MG (1 IN 1 D; 1 IN 2 D), PER ORAL
     Route: 048
     Dates: start: 20060101, end: 20110101
  3. BENICAR HCT [Suspect]
     Indication: HYPERTENSION
     Dosage: 40/25; 20/12.5 MG (1 IN 1 D; 1 IN 2 D), PER ORAL
     Route: 048
     Dates: start: 20120201
  4. BENICAR HCT [Suspect]
     Indication: HYPERTENSION
     Dosage: 40/25; 20/12.5 MG (1 IN 1 D; 1 IN 2 D), PER ORAL
     Route: 048
     Dates: start: 20110101, end: 20120201
  5. SIMVASTATIN [Concomitant]
  6. MEDICINE FOR HYPERGLUCAEMIA [Concomitant]

REACTIONS (5)
  - PAIN IN EXTREMITY [None]
  - TACHYCARDIA [None]
  - BLOOD PRESSURE FLUCTUATION [None]
  - HYPERGLYCAEMIA [None]
  - HYPOTENSION [None]
